FAERS Safety Report 6685443-8 (Version None)
Quarter: 2010Q2

REPORT INFORMATION
  Report Type: 
  Country: None (occurrence: None)
  Receive Date: 20100419
  Receipt Date: 20100409
  Transmission Date: 20101027
  Serious: Yes (Hospitalization)
  Sender: FDA-Public Use
  Company Number: US-BIOGENIDEC-2009BI034396

PATIENT
  Age: 60 Year
  Sex: Male
  Weight: 79 kg

DRUGS (5)
  1. TYSABRI [Suspect]
     Indication: MULTIPLE SCLEROSIS
     Route: 042
     Dates: start: 20090201, end: 20090901
  2. LISINOPRIL [Concomitant]
     Indication: HYPERTENSION
  3. SERTRALINE HCL [Concomitant]
     Indication: MOOD SWINGS
  4. FLEXERIL [Concomitant]
     Indication: MUSCLE SPASMS
  5. TRILEPTAL [Concomitant]
     Indication: MOOD SWINGS

REACTIONS (7)
  - CALCULUS URETERIC [None]
  - CYSTITIS [None]
  - HYPOTENSION [None]
  - LETHARGY [None]
  - RASH [None]
  - URINARY RETENTION [None]
  - URINARY TRACT INFECTION [None]
